FAERS Safety Report 4950671-6 (Version None)
Quarter: 2006Q1

REPORT INFORMATION
  Report Type: 
  Country: None (occurrence: None)
  Receive Date: 20060321
  Receipt Date: 20060321
  Transmission Date: 20060701
  Serious: Yes (Other)
  Sender: FDA-Public Use
  Company Number: None

PATIENT
  Age: 93 Year
  Sex: Male
  Weight: 65.6 kg

DRUGS (12)
  1. SCOPOLAMINE [Suspect]
  2. DOCUSATE/ SENNOSIDES [Concomitant]
  3. CITALOPRAM HYDROBROMIDE [Concomitant]
  4. CAPSAICIN [Concomitant]
  5. POTASSIUM CHLORIDE [Concomitant]
  6. MILK OF MAGNESIA TAB [Concomitant]
  7. DONEPEZIL HCL [Concomitant]
  8. DILTIAZEM [Concomitant]
  9. ACETAMINOPHEN [Concomitant]
  10. OMEPRAZOLE [Concomitant]
  11. TAMSULOSIN HCL [Concomitant]
  12. FERROUS SULFATE TAB [Concomitant]

REACTIONS (1)
  - DELIRIUM [None]
